FAERS Safety Report 8987773 (Version 2)
Quarter: 2014Q2

REPORT INFORMATION
  Report Type: Report from Study
  Country: JP (occurrence: JP)
  Receive Date: 20121227
  Receipt Date: 20140428
  Transmission Date: 20141212
  Serious: Yes (Other)
  Sender: FDA-Public Use
  Company Number: JP-ROCHE-GNE314840

PATIENT
  Age: 80 Year
  Sex: Male

DRUGS (6)
  1. RANIBIZUMAB [Suspect]
     Indication: AGE-RELATED MACULAR DEGENERATION
     Dosage: 0.05 ML, UNK
     Route: 050
     Dates: start: 20091014
  2. RANIBIZUMAB [Suspect]
     Route: 050
     Dates: start: 20100402
  3. RANIBIZUMAB [Suspect]
     Route: 050
     Dates: start: 20101129
  4. RANIBIZUMAB [Suspect]
     Route: 050
     Dates: start: 20110926
  5. VISUDYNE [Concomitant]
     Indication: AGE-RELATED MACULAR DEGENERATION
     Dosage: UNK
     Route: 065
     Dates: start: 20091021, end: 20110926
  6. CRAVIT [Concomitant]
     Indication: PRODUCT USED FOR UNKNOWN INDICATION
     Route: 065
     Dates: start: 200910, end: 201011

REACTIONS (1)
  - Retinal pigment epithelial tear [Recovered/Resolved]
